FAERS Safety Report 9011902 (Version 4)
Quarter: 2013Q4

REPORT INFORMATION
  Report Type: Spontaneous
  Country: US (occurrence: US)
  Receive Date: 20130114
  Receipt Date: 20131203
  Transmission Date: 20140711
  Serious: Yes (Hospitalization)
  Sender: FDA-Public Use
  Company Number: US-BIOGENIDEC-2013BI002280

PATIENT
  Age: 48 Year
  Sex: Female
  Weight: 89 kg

DRUGS (4)
  1. TYSABRI [Suspect]
     Indication: MULTIPLE SCLEROSIS
     Route: 042
     Dates: start: 20120323
  2. SEROQUEL [Concomitant]
     Route: 048
  3. BACLOFEN [Concomitant]
     Route: 048
  4. OMEPRAZOLE [Concomitant]

REACTIONS (2)
  - Psychotic disorder [Unknown]
  - Depression [Not Recovered/Not Resolved]
